FAERS Safety Report 7729993-1 (Version None)
Quarter: 2011Q3

REPORT INFORMATION
  Report Type: 
  Country: None (occurrence: None)
  Receive Date: 20110906
  Receipt Date: 20110830
  Transmission Date: 20111222
  Serious: Yes (Hospitalization)
  Sender: FDA-Public Use
  Company Number: CA-ROCHE-799773

PATIENT
  Sex: Male
  Weight: 108.9 kg

DRUGS (5)
  1. TOCILIZUMAB [Suspect]
     Indication: RHEUMATOID ARTHRITIS
     Route: 042
     Dates: start: 20101012, end: 20110822
  2. MULTI-VITAMIN [Concomitant]
  3. FOLIC ACID [Concomitant]
  4. PREDNISONE [Concomitant]
  5. OXAZEPAM [Concomitant]

REACTIONS (1)
  - MYOCARDIAL INFARCTION [None]
